FAERS Safety Report 19014233 (Version 1)
Quarter: 2021Q1

REPORT INFORMATION
  Report Type: Spontaneous
  Country: US (occurrence: US)
  Receive Date: 20210316
  Receipt Date: 20210316
  Transmission Date: 20210420
  Serious: Yes (Other)
  Sender: FDA-Public Use
  Company Number: US-EVOFEM BIOSCIENCES, INC.-2020US008132

PATIENT

DRUGS (1)
  1. PHEXXI [Suspect]
     Active Substance: CITRIC ACID MONOHYDRATE\LACTIC ACID, L-\POTASSIUM BITARTRATE
     Indication: CONTRACEPTION
     Dosage: UNK
     Dates: start: 202009

REACTIONS (3)
  - Drug ineffective [Unknown]
  - Abortion induced [Unknown]
  - Pregnancy [Unknown]

NARRATIVE: CASE EVENT DATE: 20201129
